FAERS Safety Report 6926486-6 (Version None)
Quarter: 2010Q3

REPORT INFORMATION
  Report Type: 
  Country: None (occurrence: None)
  Receive Date: 20100816
  Receipt Date: 20100806
  Transmission Date: 20110219
  Serious: Yes (Hospitalization)
  Sender: FDA-Public Use
  Company Number: US-ABBOTT-10P-163-0662637-00

PATIENT
  Sex: Male
  Weight: 113.5 kg

DRUGS (10)
  1. HUMIRA [Suspect]
     Indication: RHEUMATOID ARTHRITIS
     Dates: start: 20100401
  2. HUMIRA [Suspect]
     Dates: start: 20100731
  3. ATENOLOL [Concomitant]
     Indication: HYPERTENSION
  4. TRIAMTERENE [Concomitant]
     Indication: HYPERTENSION
  5. PREDNISONE [Concomitant]
     Indication: RHEUMATOID ARTHRITIS
  6. RESTASIS [Concomitant]
     Indication: KERATOCONJUNCTIVITIS SICCA
  7. XIBIOM EYE DROPS [Concomitant]
     Indication: EYE DISORDER
     Dates: start: 20091201
  8. XIBIOM EYE DROPS [Concomitant]
     Indication: SCLERITIS
  9. PREDNISONE EYE DROPS [Concomitant]
     Indication: EYE DISORDER
     Route: 047
     Dates: start: 20091201
  10. PREDNISONE EYE DROPS [Concomitant]
     Indication: SCLERITIS

REACTIONS (5)
  - ARTHRALGIA [None]
  - ARTHRITIS [None]
  - LOCALISED INFECTION [None]
  - MOBILITY DECREASED [None]
  - RHEUMATOID ARTHRITIS [None]
